FAERS Safety Report 8941000 (Version 7)
Quarter: 2013Q2

REPORT INFORMATION
  Report Type: Spontaneous
  Country: US (occurrence: US)
  Receive Date: 20121203
  Receipt Date: 20130528
  Transmission Date: 20140414
  Serious: Yes (Hospitalization, Disabling)
  Sender: FDA-Public Use
  Company Number: US-009507513-1211USA012343

PATIENT
  Sex: Female
  Weight: 53.61 kg

DRUGS (4)
  1. FOSAMAX [Suspect]
     Indication: OSTEOPENIA
     Dosage: 70 MG, UNK
     Route: 048
     Dates: end: 2011
  2. FOSAMAX [Suspect]
     Indication: OSTEOPOROSIS
     Dosage: 10 MG, UNK
     Route: 048
  3. CALCIUM (UNSPECIFIED) (+) VITAMIN D (UNSPECIFIED) [Concomitant]
     Indication: VITAMIN D DEFICIENCY
     Dosage: UNK
     Route: 048
     Dates: start: 1997
  4. CALCIUM (UNSPECIFIED) (+) VITAMIN D (UNSPECIFIED) [Concomitant]
     Indication: CALCIUM DEFICIENCY

REACTIONS (20)
  - Foot fracture [Not Recovered/Not Resolved]
  - Foot operation [Unknown]
  - Foot fracture [Not Recovered/Not Resolved]
  - Foot operation [Unknown]
  - Fall [Unknown]
  - Pain in extremity [Not Recovered/Not Resolved]
  - Blood cholesterol increased [Not Recovered/Not Resolved]
  - Hypertension [Not Recovered/Not Resolved]
  - Fracture [Unknown]
  - Gingival disorder [Unknown]
  - Gingival bleeding [Unknown]
  - Osteoporosis [Unknown]
  - Pharyngitis [Unknown]
  - Acute sinusitis [Unknown]
  - Cough [Unknown]
  - Viral infection [Unknown]
  - Tonsillectomy [Unknown]
  - Impaired healing [Unknown]
  - Oedema mouth [Unknown]
  - Headache [Unknown]
